FAERS Safety Report 25518643 (Version 2)
Quarter: 2025Q3

REPORT INFORMATION
  Report Type: Report from Study
  Country: EU (occurrence: EU)
  Receive Date: 20250704
  Receipt Date: 20250721
  Transmission Date: 20251020
  Serious: Yes (Other)
  Sender: JAZZ
  Company Number: EU-JAZZ PHARMACEUTICALS-2025-FR-016477

PATIENT
  Age: 34 Year
  Weight: 50 kg

DRUGS (1)
  1. DEFITELIO [Suspect]
     Active Substance: DEFIBROTIDE SODIUM
     Indication: Product used for unknown indication

REACTIONS (1)
  - Cystitis haemorrhagic [Unknown]
